FAERS Safety Report 14687847 (Version 2)
Quarter: 2018Q1

REPORT INFORMATION
  Report Type: Spontaneous
  Country: JP (occurrence: JP)
  Receive Date: 20180328
  Receipt Date: 20180328
  Transmission Date: 20180509
  Serious: Yes (Other)
  Sender: FDA-Public Use
  Company Number: PHJP2018JP007048

PATIENT
  Age: 69 Year
  Sex: Male

DRUGS (3)
  1. ELTROMBOPAG [Concomitant]
     Active Substance: ELTROMBOPAG
     Dosage: 100 MG, UNK
     Route: 065
  2. ELTROMBOPAG [Concomitant]
     Active Substance: ELTROMBOPAG
     Indication: PLATELET COUNT DECREASED
     Dosage: 75 MG, UNK
     Route: 065
  3. CICLOSPORIN [Suspect]
     Active Substance: CYCLOSPORINE
     Indication: APLASTIC ANAEMIA
     Dosage: UNK
     Route: 065

REACTIONS (2)
  - Cystitis haemorrhagic [Unknown]
  - Neutrophil count decreased [Recovered/Resolved]
